FAERS Safety Report 18344177 (Version 1)
Quarter: 2020Q4

REPORT INFORMATION
  Report Type: Spontaneous
  Country: US (occurrence: US)
  Receive Date: 20201001
  Receipt Date: 20201001
  Transmission Date: 20210114
  Serious: Yes (Hospitalization)
  Sender: FDA-Public Use
  Company Number: None

PATIENT
  Sex: Male

DRUGS (2)
  1. HYDROXYUREA. [Concomitant]
     Active Substance: HYDROXYUREA
  2. NEULASTA [Suspect]
     Active Substance: PEGFILGRASTIM
     Indication: TESTIS CANCER
     Dosage: ?          OTHER DOSE:1 SYR;OTHER ROUTE:SC -FOR 6 CYCLES?

REACTIONS (1)
  - Hospitalisation [None]
